FAERS Safety Report 18027285 (Version 1)
Quarter: 2020Q3

REPORT INFORMATION
  Report Type: Spontaneous
  Country: NO (occurrence: NO)
  Receive Date: 20200716
  Receipt Date: 20200716
  Transmission Date: 20201103
  Serious: Yes (Other)
  Sender: FDA-Public Use
  Company Number: NO-TEVA-2020-NO-1799486

PATIENT
  Age: 78 Year
  Sex: Female

DRUGS (2)
  1. VOLTAREN [Interacting]
     Active Substance: DICLOFENAC SODIUM
     Indication: TENOSYNOVITIS
     Dosage: 1 DOSAGE FORMS ,1*3
     Dates: start: 20200513, end: 20200519
  2. PREDNISOLON [Suspect]
     Active Substance: PREDNISOLONE
     Indication: TENOSYNOVITIS
     Dosage: 30 MILLIGRAM DAILY; 30 MG, 30 MG X 1 GIVEN IN THE EVENING AFTER COMPLETING TREATMENT WITH VOLTAREN
     Dates: start: 20200519, end: 20200519

REACTIONS (2)
  - Rectal haemorrhage [Recovered/Resolved]
  - Drug interaction [Recovered/Resolved]

NARRATIVE: CASE EVENT DATE: 20200520
